FAERS Safety Report 16346831 (Version 2)
Quarter: 2019Q2

REPORT INFORMATION
  Report Type: Spontaneous
  Country: US (occurrence: US)
  Receive Date: 20190523
  Receipt Date: 20190528
  Transmission Date: 20190711
  Serious: No
  Sender: FDA-Public Use
  Company Number: US-PFIZER INC-2019216183

PATIENT
  Sex: Male

DRUGS (2)
  1. CELEBREX [Suspect]
     Active Substance: CELECOXIB
     Indication: BACK PAIN
     Dosage: 200 MG, 1X/DAY (CELEBREX 200 MG ONCE A DAY FOR 3 DAYS)
  2. CELEBREX [Suspect]
     Active Substance: CELECOXIB
     Dosage: 200 MG, DAILY (CELEBREX 200 MG EVERY DAY FOR THE FULL WEEK)

REACTIONS (3)
  - Faeces discoloured [Unknown]
  - Dry skin [Unknown]
  - Pruritus [Unknown]
